FAERS Safety Report 4530860-5 (Version None)
Quarter: 2004Q4

REPORT INFORMATION
  Report Type: 
  Country: None (occurrence: None)
  Receive Date: 20041217
  Receipt Date: 20041216
  Transmission Date: 20050328
  Serious: Yes (Life-Threatening)
  Sender: FDA-Public Use
  Company Number: IT-MERCK-0412ITA00026

PATIENT
  Age: 73 Year
  Sex: Female

DRUGS (12)
  1. INVANZ [Suspect]
     Indication: CELLULITIS
     Route: 042
     Dates: start: 20041129, end: 20041204
  2. ENALAPRIL MALEATE [Concomitant]
     Route: 048
  3. AMIODARONE HYDROCHLORIDE [Concomitant]
     Route: 048
  4. FUROSEMIDE SODIUM [Concomitant]
     Route: 048
  5. BROMAZEPAM [Concomitant]
     Route: 048
  6. CANRENOATE POTASSIUM [Concomitant]
     Route: 048
  7. NICERGOLINE [Concomitant]
     Route: 048
  8. PROMAZINE HYDROCHLORIDE [Concomitant]
     Route: 048
  9. ASPIRIN LYSINE [Concomitant]
     Route: 048
  10. GLIMEPIRIDE [Concomitant]
     Route: 048
  11. PANTOPRAZOLE SODIUM [Concomitant]
     Route: 048
  12. INDOMETHACIN [Concomitant]
     Route: 065

REACTIONS (1)
  - HYPOGLYCAEMIA [None]
